FAERS Safety Report 17726065 (Version 1)
Quarter: 2020Q2

REPORT INFORMATION
  Report Type: Report from Study
  Country: BR (occurrence: BR)
  Receive Date: 20200429
  Receipt Date: 20200429
  Transmission Date: 20200714
  Serious: Yes (Other)
  Sender: FDA-Public Use
  Company Number: NVSC2020BR093844

PATIENT
  Age: 46 Year
  Sex: Female

DRUGS (8)
  1. CARVEDILOL. [Suspect]
     Active Substance: CARVEDILOL
     Indication: PRODUCT USED FOR UNKNOWN INDICATION
     Dosage: 12.5 MG, Q12H
     Route: 065
  2. CARVEDILOL. [Suspect]
     Active Substance: CARVEDILOL
     Dosage: 6 UNK
     Route: 065
  3. ENALAPRIL [Suspect]
     Active Substance: ENALAPRIL
     Indication: CARDIAC FAILURE
     Dosage: UNK
     Route: 065
     Dates: end: 20200304
  4. SPIRONOLACTONE. [Concomitant]
     Active Substance: SPIRONOLACTONE
     Indication: POLYURIA
     Dosage: UNK MORE THAN 20 DAYS AGO. 05-MAR OR 06-MAR-2020
     Route: 065
  5. FUROSEMIDE. [Concomitant]
     Active Substance: FUROSEMIDE
     Indication: SWELLING
     Dosage: 1 DF, UNKNOWN
     Route: 065
  6. FUROSEMIDE. [Concomitant]
     Active Substance: FUROSEMIDE
     Indication: POLYURIA
  7. ENTRESTO [Suspect]
     Active Substance: SACUBITRIL\VALSARTAN
     Indication: PRODUCT USED FOR UNKNOWN INDICATION
     Dosage: 1 DF, QD (MORE THAN 20 DAYS AGO. 05 OR 06 MAR 2020)
     Route: 065
     Dates: start: 202003
  8. CARVEDILOL. [Suspect]
     Active Substance: CARVEDILOL
     Dosage: 3 UNK
     Route: 065
     Dates: start: 20200225

REACTIONS (11)
  - Cardiac dysfunction [Unknown]
  - Product prescribing error [Unknown]
  - Swelling face [Unknown]
  - Hypersensitivity [Unknown]
  - Erythema [Unknown]
  - Off label use [Unknown]
  - Cardiac failure [Unknown]
  - Swelling [Unknown]
  - Dyspnoea [Unknown]
  - Abdominal distension [Unknown]
  - Fatigue [Unknown]

NARRATIVE: CASE EVENT DATE: 20200225
